FAERS Safety Report 6197637-9 (Version None)
Quarter: 2009Q2

REPORT INFORMATION
  Report Type: 
  Country: None (occurrence: None)
  Receive Date: 20090521
  Receipt Date: 20090514
  Transmission Date: 20091009
  Serious: Yes (Death, Other)
  Sender: FDA-Public Use
  Company Number: US-BAYER-200911403BCC

PATIENT
  Age: 89 Year
  Sex: Female
  Weight: 77 kg

DRUGS (3)
  1. PHILLIPS' LIQUID GELS [Suspect]
     Indication: DRUG USE FOR UNKNOWN INDICATION
     Dosage: DRUG NOT TAKEN
  2. STOOL SOFTENER [Suspect]
  3. LEVOTHYROXINE SODIUM [Concomitant]

REACTIONS (6)
  - CEREBROVASCULAR ACCIDENT [None]
  - DEATH [None]
  - ERYTHEMA [None]
  - FACIAL PALSY [None]
  - HYPOPHAGIA [None]
  - SKIN DISCOLOURATION [None]
